FAERS Safety Report 15328807 (Version 1)
Quarter: 2018Q3

REPORT INFORMATION
  Report Type: Spontaneous
  Country: US (occurrence: US)
  Receive Date: 20180829
  Receipt Date: 20180829
  Transmission Date: 20181010
  Serious: No
  Sender: FDA-Public Use
  Company Number: US-SCIEGEN PHARMACEUTICALS INC-2018SCISPO00578

PATIENT

DRUGS (1)
  1. BUPROPION HYDROCHLORIDE. [Suspect]
     Active Substance: BUPROPION HYDROCHLORIDE
     Indication: PRODUCT USED FOR UNKNOWN INDICATION
     Dosage: UNK
     Route: 065
     Dates: start: 201801, end: 201808

REACTIONS (6)
  - Paranoia [Recovering/Resolving]
  - Psychotic behaviour [Recovering/Resolving]
  - Dehydration [Recovering/Resolving]
  - Fear [Recovering/Resolving]
  - Thirst [Recovering/Resolving]
  - Product odour abnormal [Unknown]
